FAERS Safety Report 7977372-4 (Version None)
Quarter: 2011Q4

REPORT INFORMATION
  Report Type: 
  Country: None (occurrence: None)
  Receive Date: 20111213
  Receipt Date: 20111102
  Transmission Date: 20120403
  Serious: Yes (Hospitalization)
  Sender: FDA-Public Use
  Company Number: US-AMGEN-USASP2011049231

PATIENT
  Age: 32 Year
  Sex: Female

DRUGS (2)
  1. ENBREL [Suspect]
     Indication: RHEUMATOID ARTHRITIS
     Dosage: 50 MG, QWK
     Dates: start: 20110810
  2. TREXALL [Concomitant]
     Dosage: 1 MG, QWK
     Dates: start: 20100101

REACTIONS (2)
  - RHEUMATOID ARTHRITIS [None]
  - APPENDICITIS [None]
